FAERS Safety Report 8604959-8 (Version None)
Quarter: 2012Q3

REPORT INFORMATION
  Report Type: 
  Country: None (occurrence: None)
  Receive Date: 20120820
  Receipt Date: 20120816
  Transmission Date: 20120928
  Serious: Yes (Life-Threatening, Hospitalization)
  Sender: FDA-Public Use
  Company Number: CL-PFIZER INC-2012201068

PATIENT
  Sex: Female

DRUGS (2)
  1. RAVOTRIL [Concomitant]
     Dosage: UNK
  2. PRISTIQ [Suspect]
     Indication: MENTAL DISORDER
     Dosage: UNK

REACTIONS (2)
  - OVERDOSE [None]
  - SUICIDE ATTEMPT [None]
